FAERS Safety Report 8219539-6 (Version None)
Quarter: 2012Q1

REPORT INFORMATION
  Report Type: 
  Country: None (occurrence: None)
  Receive Date: 20120319
  Receipt Date: 20120307
  Transmission Date: 20120608
  Serious: Yes (Hospitalization)
  Sender: FDA-Public Use
  Company Number: JP-BRISTOL-MYERS SQUIBB COMPANY-16430951

PATIENT
  Age: 67 Year
  Sex: Male

DRUGS (2)
  1. CARBOPLATIN [Suspect]
     Indication: LUNG NEOPLASM MALIGNANT
     Dosage: CBDCA,2 WEEKS AGO
  2. VEPESID [Suspect]
     Indication: LUNG NEOPLASM MALIGNANT
     Dosage: COMBINATION THERAPY WITH CBDCA,2 WEEKS AGO
     Route: 042

REACTIONS (1)
  - BLOOD PRESSURE DECREASED [None]
